FAERS Safety Report 10897192 (Version 2)
Quarter: 2015Q2

REPORT INFORMATION
  Report Type: Spontaneous
  Country: CN (occurrence: CN)
  Receive Date: 20150309
  Receipt Date: 20150517
  Transmission Date: 20150821
  Serious: Yes (Hospitalization, Other)
  Sender: FDA-Public Use
  Company Number: CN-009507513-1503CHN003860

PATIENT
  Age: 48 Year
  Sex: Male
  Weight: 62.5 kg

DRUGS (1)
  1. CLARITYNE [Suspect]
     Active Substance: LORATADINE
     Indication: DRUG HYPERSENSITIVITY
     Dosage: 1 DF, QD
     Route: 048
     Dates: start: 20140906, end: 20140916

REACTIONS (1)
  - Hepatic function abnormal [Recovering/Resolving]

NARRATIVE: CASE EVENT DATE: 20140915
